FAERS Safety Report 6391180-X (Version None)
Quarter: 2009Q4

REPORT INFORMATION
  Report Type: 
  Country: None (occurrence: None)
  Receive Date: 20091006
  Receipt Date: 20091006
  Transmission Date: 20100525
  Serious: Yes (Hospitalization)
  Sender: FDA-Public Use
  Company Number: None

PATIENT
  Sex: Female
  Weight: 74.8435 kg

DRUGS (1)
  1. LEVAQUIN [Suspect]
     Indication: PNEUMONIA
     Dosage: 1 PILL PER DAY PO
     Route: 048
     Dates: start: 20090824, end: 20090828

REACTIONS (3)
  - MUSCLE TWITCHING [None]
  - NEUROPATHY PERIPHERAL [None]
  - URINARY RETENTION [None]
